FAERS Safety Report 6904417-2 (Version None)
Quarter: 2010Q3

REPORT INFORMATION
  Report Type: 
  Country: None (occurrence: None)
  Receive Date: 20100804
  Receipt Date: 20090516
  Transmission Date: 20110219
  Serious: No
  Sender: FDA-Public Use
  Company Number: US-PFIZER INC-2009178823

PATIENT
  Sex: Female

DRUGS (11)
  1. LYRICA [Suspect]
     Indication: FIBROMYALGIA
     Dosage: 100 MG, 2X/DAY
     Route: 048
  2. LYRICA [Suspect]
     Indication: BACK DISORDER
  3. LYRICA [Suspect]
     Indication: MUSCULOSKELETAL DISCOMFORT
  4. ETODOLAC [Concomitant]
     Dosage: UNK
  5. WARFARIN SODIUM [Concomitant]
     Dosage: UNK
  6. LEVOXYL [Concomitant]
     Dosage: UNK
  7. INDOCIN [Concomitant]
     Dosage: UNK
  8. ROBAXIN [Concomitant]
     Dosage: UNK
  9. PAXIL [Concomitant]
     Dosage: UNK
  10. VERAPAMIL [Concomitant]
     Dosage: UNK
  11. KEFLEX [Concomitant]
     Dosage: UNK

REACTIONS (2)
  - DISORIENTATION [None]
  - VISION BLURRED [None]
